FAERS Safety Report 8443926-4 (Version None)
Quarter: 2012Q2

REPORT INFORMATION
  Report Type: 
  Country: None (occurrence: None)
  Receive Date: 20120618
  Receipt Date: 20120613
  Transmission Date: 20120825
  Serious: Yes (Life-Threatening, Hospitalization)
  Sender: FDA-Public Use
  Company Number: FR-SANOFI-AVENTIS-2011SA070345

PATIENT
  Age: 74 Year
  Sex: Female

DRUGS (6)
  1. CORDARONE [Suspect]
     Route: 048
     Dates: start: 20060427, end: 20101028
  2. MULTAQ [Suspect]
     Route: 048
     Dates: start: 20101029, end: 20111014
  3. PREVISCAN [Concomitant]
     Indication: ATRIAL FIBRILLATION
     Route: 048
  4. LANSOPRAZOLE [Concomitant]
     Indication: GASTRIC ULCER
     Route: 048
  5. VALSARTAN [Concomitant]
     Dosage: DOSE: UNIT(S)
     Route: 048
     Dates: end: 20111014
  6. ATORVASTATIN [Concomitant]
     Dosage: STRENGTH; 10 MG, DOSE 1
     Route: 048

REACTIONS (3)
  - HYPERTHYROIDISM [None]
  - CARDIAC FAILURE [None]
  - ATRIAL FIBRILLATION [None]
